FAERS Safety Report 4913655-X (Version None)
Quarter: 2006Q1

REPORT INFORMATION
  Report Type: 
  Country: None (occurrence: None)
  Receive Date: 20060214
  Receipt Date: 20060214
  Transmission Date: 20060701
  Serious: Yes (Hospitalization)
  Sender: FDA-Public Use
  Company Number: None

PATIENT
  Age: 59 Year
  Sex: Male
  Weight: 65.7716 kg

DRUGS (17)
  1. FLUOROURACIL [Suspect]
     Indication: NEOPLASM MALIGNANT
     Dosage: 1026 MG CIV X 5 DAYS
     Route: 042
     Dates: start: 20060206, end: 20060211
  2. DOCETAXEL [Suspect]
     Indication: NEOPLASM MALIGNANT
     Dosage: 43MG IV X 1 DAY
     Dates: start: 20060206
  3. ACETAMINOPHEN [Concomitant]
  4. ALLOPURINOL [Concomitant]
  5. ATENOLOL [Concomitant]
  6. DEXAMETHASONE SODIUM PHOSPHATE [Concomitant]
  7. DUCOSATE [Concomitant]
  8. EPOTIN ALFA [Concomitant]
  9. LISINOPRIL [Concomitant]
  10. INSULIN [Concomitant]
  11. MAALOX FAST BLOCKER [Concomitant]
  12. NYSTATIN [Concomitant]
  13. OMEPRAZOLE [Concomitant]
  14. ONDANSETRON [Concomitant]
  15. PENTOXIFYLLINE [Concomitant]
  16. PROCHLOROPERAZINE [Concomitant]
  17. NACL [Concomitant]

REACTIONS (6)
  - BLOOD PRESSURE SYSTOLIC INCREASED [None]
  - CONFUSIONAL STATE [None]
  - DELIRIUM [None]
  - FEBRILE NEUTROPENIA [None]
  - MUCOSAL INFLAMMATION [None]
  - RESPIRATORY RATE INCREASED [None]
